FAERS Safety Report 8934528 (Version 1)
Quarter: 2012Q4

REPORT INFORMATION
  Report Type: 
  Country: US (occurrence: US)
  Receive Date: 20121129
  Receipt Date: 20121129
  Transmission Date: 20130627
  Serious: No
  Sender: FDA-Public Use
  Company Number: US-GLAXOSMITHKLINE-A0978405A

PATIENT
  Age: 42 Year
  Sex: Female

DRUGS (1)
  1. FLOVENT [Suspect]
     Indication: EOSINOPHILIC OESOPHAGITIS
     Dosage: 2PUFF Twice per day
     Route: 048
     Dates: start: 2006, end: 2006

REACTIONS (3)
  - Drug ineffective [Unknown]
  - Chest pain [Unknown]
  - Off label use [Unknown]
